FAERS Safety Report 8795862 (Version 2)
Quarter: 2013Q1

REPORT INFORMATION
  Report Type: Spontaneous
  Country: BR (occurrence: BR)
  Receive Date: 20120919
  Receipt Date: 20130220
  Transmission Date: 20140127
  Serious: Yes (Other)
  Sender: FDA-Public Use
  Company Number: PHHY2012BR080674

PATIENT
  Age: 66 Year
  Sex: Female

DRUGS (1)
  1. DIOVAN HCT [Suspect]
     Indication: HYPERTENSION
     Dosage: 1 DF (VALS 320 MG, HYDR12.5 MG), DAILY
     Route: 048

REACTIONS (12)
  - Lower respiratory tract inflammation [Unknown]
  - Asthma [Unknown]
  - Painful respiration [Unknown]
  - Dyspnoea [Unknown]
  - Speech disorder [Unknown]
  - Hearing impaired [Not Recovered/Not Resolved]
  - Influenza [Unknown]
  - Feeling abnormal [Unknown]
  - Neck pain [Recovered/Resolved]
  - Insomnia [Unknown]
  - Fatigue [Unknown]
  - Headache [Recovered/Resolved]
